FAERS Safety Report 13741914 (Version 11)
Quarter: 2023Q2

REPORT INFORMATION
  Report Type: Spontaneous
  Country: US (occurrence: US)
  Receive Date: 20170711
  Receipt Date: 20230609
  Transmission Date: 20230721
  Serious: Yes (Other)
  Sender: FDA-Public Use
  Company Number: US-PFIZER INC-2017298883

PATIENT
  Age: 79 Year
  Sex: Female
  Weight: 113 kg

DRUGS (54)
  1. XELJANZ [Suspect]
     Active Substance: TOFACITINIB CITRATE
     Indication: Rheumatoid arthritis
     Dosage: 5 MG, DAILY
     Route: 048
     Dates: start: 20170510, end: 20170603
  2. XELJANZ [Suspect]
     Active Substance: TOFACITINIB CITRATE
     Indication: Urinary tract infection
     Dosage: 5 MG, DAILY
     Route: 048
     Dates: start: 20170609, end: 20170711
  3. XELJANZ [Suspect]
     Active Substance: TOFACITINIB CITRATE
     Dosage: 5 MG, 1X/DAY
     Route: 048
     Dates: start: 20170725
  4. XELJANZ [Suspect]
     Active Substance: TOFACITINIB CITRATE
     Dosage: 5 MG, 1X/DAY
     Route: 048
     Dates: start: 201704
  5. XELJANZ [Suspect]
     Active Substance: TOFACITINIB CITRATE
     Dosage: 5 MG, 2X/DAY
     Route: 048
     Dates: start: 20170810
  6. XELJANZ [Suspect]
     Active Substance: TOFACITINIB CITRATE
     Dosage: UNK
     Route: 048
  7. XELJANZ [Suspect]
     Active Substance: TOFACITINIB CITRATE
     Dosage: 5 MG, DAILY (TAKE 90 TABLET(S) EVERY DAY BY ORAL ROUTE AS DIRECTED FOR 90 DAYS)
     Route: 048
  8. CARVEDILOL [Concomitant]
     Active Substance: CARVEDILOL
     Indication: Cardiac disorder
     Dosage: 3.125 MG, 2X/DAY (1 TABLET) (BID)
     Route: 048
  9. CARVEDILOL [Concomitant]
     Active Substance: CARVEDILOL
     Indication: Blood pressure abnormal
  10. OMEPRAZOLE [Concomitant]
     Active Substance: OMEPRAZOLE
     Indication: Gastrooesophageal reflux disease
     Dosage: 20 MG (1 TABLET), DAILY
     Route: 048
  11. OMEPRAZOLE [Concomitant]
     Active Substance: OMEPRAZOLE
     Dosage: 20 MG, 1X/DAY
     Route: 048
  12. FUROSEMIDE [Concomitant]
     Active Substance: FUROSEMIDE
     Indication: Oedema
     Dosage: 20 MG (1 TABLET), DAILY
     Route: 048
  13. FUROSEMIDE [Concomitant]
     Active Substance: FUROSEMIDE
     Indication: Fluid imbalance
     Dosage: 40 MG, 1X/DAY
     Route: 048
     Dates: start: 20170815
  14. FUROSEMIDE [Concomitant]
     Active Substance: FUROSEMIDE
     Indication: Joint swelling
  15. ACETAMINOPHEN [Concomitant]
     Active Substance: ACETAMINOPHEN
     Dosage: 2 DF (TWO TABLETS), DAILY
     Route: 048
  16. CALTRATE 600+D SOFT CHEW [Concomitant]
     Dosage: 1 DF, 2X/DAY (ONE SOFT CHEW, TWICE DAILY)
     Route: 048
  17. ASPIRIN [Concomitant]
     Active Substance: ASPIRIN
     Indication: Cardiac disorder
     Dosage: 81 MG (1 TABLET), DAILY
     Route: 048
  18. COZAAR [Concomitant]
     Active Substance: LOSARTAN POTASSIUM
     Dosage: 25 MG (1 TABLET), DAILY
     Route: 048
  19. TRESIBA [Concomitant]
     Active Substance: INSULIN DEGLUDEC
     Indication: Diabetes mellitus
     Dosage: 34 IU, 1X/DAY (BEFORE BED)
     Route: 058
  20. METFORMIN HYDROCHLORIDE [Concomitant]
     Active Substance: METFORMIN HYDROCHLORIDE
     Dosage: 500 MG (1 TABLET), DAILY (QD)
     Route: 048
  21. HUMALOG [Concomitant]
     Active Substance: INSULIN LISPRO
     Indication: Diabetes mellitus
     Dosage: 3 IU, 1X/DAY (BEFORE DINNER AT NIGHT)
     Route: 058
  22. FOLIC ACID [Concomitant]
     Active Substance: FOLIC ACID
     Indication: Cardiac disorder
     Dosage: 1 MG, ALTERNATE DAY (1 TABLET EVERY OTHER DAY)
     Route: 048
     Dates: start: 1996
  23. FOLIC ACID [Concomitant]
     Active Substance: FOLIC ACID
     Dosage: 1 MG, ALTERNATE DAY
     Route: 048
  24. LOVASTATIN [Concomitant]
     Active Substance: LOVASTATIN
     Dosage: 20 MG, DAILY
     Route: 048
  25. SYNTHROID [Concomitant]
     Active Substance: LEVOTHYROXINE SODIUM
     Dosage: 75 UG, DAILY
     Route: 048
  26. RESTASIS [Concomitant]
     Active Substance: CYCLOSPORINE
     Dosage: 1 DROP (GTT), EACH EYE TWICE A DAY (OU, BID)
  27. METHOTREXATE SODIUM [Concomitant]
     Active Substance: METHOTREXATE SODIUM
     Indication: Rheumatoid arthritis
     Dosage: 0.6 ML, WEEKLY
     Route: 058
     Dates: start: 1996
  28. ROBAXIN [Concomitant]
     Active Substance: METHOCARBAMOL
     Indication: Pain
     Dosage: 500 MG (1 TABLET), EVERY 8 HOURS AS NEEDED
     Route: 048
  29. ALEVE [Concomitant]
     Active Substance: NAPROXEN SODIUM
     Dosage: 1 TO 2 TABLETS, AS NEEDED DAILY AT BEDTIME
     Route: 048
  30. ZOLOFT [Concomitant]
     Active Substance: SERTRALINE HYDROCHLORIDE
     Indication: Depression
     Dosage: 100 MG (1 TABLET), DAILY (QD)
     Route: 048
  31. SYMBICORT [Concomitant]
     Active Substance: BUDESONIDE\FORMOTEROL FUMARATE DIHYDRATE
     Dosage: 1 PUFF TWICE A DAY (BID)
     Route: 055
  32. MINERALS\VITAMINS [Concomitant]
     Active Substance: MINERALS\VITAMINS
     Indication: Anaemia
     Dosage: 1 DF, DAILY
     Route: 048
  33. MINERALS\VITAMINS [Concomitant]
     Active Substance: MINERALS\VITAMINS
     Indication: Blood iron decreased
  34. DILAUDID [Concomitant]
     Active Substance: HYDROMORPHONE HYDROCHLORIDE
     Indication: Pain
     Dosage: 2 MG (1 TABLET), AS NEEDED EVERY 12 HOURS (Q12H)
     Route: 048
  35. DILAUDID [Concomitant]
     Active Substance: HYDROMORPHONE HYDROCHLORIDE
     Dosage: 1 OR 2 BY MOUTH EVERY 4 HOURS AS NEEDED
     Route: 048
  36. MYLANTA [Concomitant]
     Active Substance: ALUMINUM HYDROXIDE\DIMETHICONE\MAGNESIUM HYDROXIDE
     Dosage: UNK, AS NEEDED
  37. LIDOCAINE [Concomitant]
     Active Substance: LIDOCAINE
     Dosage: UNK, AS NEEDED
  38. BENADRYL [Concomitant]
     Active Substance: DIPHENHYDRAMINE HYDROCHLORIDE
     Dosage: UNK, AS NEEDED(MAGIC MOUTHWASH:SWISH AND SPIT 2 TABLESPOONS THRICE A DAY AS NEEDED ,EQUAL PARTS)
  39. IMODIUM MULTI-SYMPTOM RELIEF [Concomitant]
     Active Substance: DIMETHICONE\LOPERAMIDE HYDROCHLORIDE
     Dosage: 1/12 TAB EVERY OTHER DAY (QOD)
     Route: 048
  40. VITAMIN D3 [Concomitant]
     Active Substance: CHOLECALCIFEROL
     Indication: Vitamin D decreased
     Dosage: 5000 IU, WEEKLY
     Route: 048
  41. BACTROBAN [Concomitant]
     Active Substance: MUPIROCIN\MUPIROCIN CALCIUM
     Dosage: UNK, 2X/DAY (APPLY A SMALL AMOUNT)
     Route: 061
  42. NEOMYCIN-POLYMYXIN-HC [Concomitant]
     Dosage: UNK, 3-4 DROPS AFFECTED EAR 3-4 TIMES DAILY FOR 5-7 DAYS (3.5/ 10000)
  43. NYSTATIN [Concomitant]
     Active Substance: NYSTATIN
     Dosage: APPLY TWICE TO THRICE A DAY (BID TO TID)
  44. FLUTICASONE PROPIONATE [Concomitant]
     Active Substance: FLUTICASONE PROPIONATE
     Dosage: 2 DF, DAILY (2 SPRAYS INTO EACH NOSTRIL)
     Route: 045
  45. ZYRTEC [Concomitant]
     Active Substance: CETIRIZINE HYDROCHLORIDE
     Indication: Hypersensitivity
     Dosage: 10 MG (1 TABLET), DAILY
     Route: 048
  46. PREDNISONE [Concomitant]
     Active Substance: PREDNISONE
     Dosage: 10 MG, USE AS DIRECTED
  47. PROVENTIL HFA [Concomitant]
     Active Substance: ALBUTEROL SULFATE
     Dosage: UNK, 4X/DAY (TAKE 2-3 PUFFS EVERY 6 HOURS)
  48. PHILLIPS COLON HEALTH [Concomitant]
     Dosage: 1 DF, DAILY
     Route: 048
  49. SUPREP BOWEL PREP [Concomitant]
     Active Substance: MAGNESIUM SULFATE\POTASSIUM SULFATE\SODIUM SULFATE
     Indication: Colonoscopy
     Dosage: UNK, AS DIRECTED
  50. ACETAMINOPHEN [Concomitant]
     Active Substance: ACETAMINOPHEN
     Indication: Pain
     Dosage: 500 MG, 2X/DAY
     Route: 048
  51. LOSARTAN [Concomitant]
     Active Substance: LOSARTAN
     Indication: Blood pressure abnormal
     Dosage: 25 MG, 1X/DAY
     Route: 048
  52. ATORVASTATIN [Concomitant]
     Active Substance: ATORVASTATIN
     Indication: Blood cholesterol
     Dosage: 20 MG, 1X/DAY (AT NIGHT)
     Route: 048
  53. METHOCARBAMOL [Concomitant]
     Active Substance: METHOCARBAMOL
     Indication: Pain
     Dosage: 500 MG, AS NEEDED
  54. PLANTAGO AFRA SEED [Concomitant]
     Active Substance: PLANTAGO AFRA SEED
     Dosage: 2 DF, DAILY
     Route: 048

REACTIONS (18)
  - Urinary tract infection [Recovered/Resolved]
  - Neoplasm malignant [Unknown]
  - COVID-19 [Unknown]
  - Neoplasm recurrence [Unknown]
  - Malignant neoplasm of eye [Unknown]
  - Off label use [Unknown]
  - Pre-existing condition improved [Unknown]
  - Therapeutic response unexpected [Unknown]
  - Fall [Recovered/Resolved]
  - Limb injury [Recovered/Resolved]
  - Somnolence [Recovered/Resolved]
  - Hypersomnia [Recovered/Resolved]
  - Joint swelling [Unknown]
  - Musculoskeletal stiffness [Unknown]
  - Infection [Unknown]
  - Illness [Unknown]
  - Malaise [Unknown]
  - Fall [Unknown]

NARRATIVE: CASE EVENT DATE: 20170801
